FAERS Safety Report 11393278 (Version 1)
Quarter: 2015Q3

REPORT INFORMATION
  Report Type: Spontaneous
  Country: IN (occurrence: IN)
  Receive Date: 20150818
  Receipt Date: 20150818
  Transmission Date: 20151125
  Serious: Yes (Other)
  Sender: FDA-Public Use
  Company Number: IN-BAUSCH-BL-2015-019765

PATIENT
  Age: 4 Decade
  Sex: Male

DRUGS (4)
  1. ZINC ACETATE [Concomitant]
     Active Substance: ZINC ACETATE
     Indication: HEPATO-LENTICULAR DEGENERATION
  2. D-PENICILLAMINE [Suspect]
     Active Substance: PENICILLAMINE
     Indication: HEPATO-LENTICULAR DEGENERATION
     Route: 065
  3. D-PENICILLAMINE [Suspect]
     Active Substance: PENICILLAMINE
     Route: 065
  4. D-PENICILLAMINE [Suspect]
     Active Substance: PENICILLAMINE
     Route: 065

REACTIONS (1)
  - Skin degenerative disorder [Recovering/Resolving]
